FAERS Safety Report 10899129 (Version 1)
Quarter: 2015Q1

REPORT INFORMATION
  Report Type: Spontaneous
  Country: IE (occurrence: IE)
  Receive Date: 20150309
  Receipt Date: 20150309
  Transmission Date: 20150721
  Serious: Yes (Life-Threatening)
  Sender: FDA-Public Use
  Company Number: IE-TEVA-545414ISR

PATIENT
  Age: 41 Year
  Sex: Female

DRUGS (2)
  1. ESCITALOPRAM [Suspect]
     Active Substance: ESCITALOPRAM OXALATE
     Indication: DEPRESSION
     Dosage: 10 MILLIGRAM DAILY;
     Route: 048
     Dates: start: 20150211, end: 20150214
  2. LANSOPRAZOLE TEVA SANTE 15 MG [Suspect]
     Active Substance: LANSOPRAZOLE
     Indication: PROPHYLAXIS
     Dosage: 30 MILLIGRAM DAILY; GASTRO-RESISTANT CAPSULE
     Route: 048
     Dates: start: 20140224, end: 20150214

REACTIONS (6)
  - Pyrexia [Unknown]
  - Chills [Unknown]
  - Diarrhoea [Unknown]
  - Hyperhidrosis [Unknown]
  - Tremor [Unknown]
  - Tremor [None]

NARRATIVE: CASE EVENT DATE: 20150214
